FAERS Safety Report 9182070 (Version 1)
Quarter: 2012Q4

REPORT INFORMATION
  Report Type: 
  Country: CA (occurrence: CA)
  Receive Date: 20121030
  Receipt Date: 20121030
  Transmission Date: 20130627
  Serious: Yes (Disabling, Other)
  Sender: FDA-Public Use
  Company Number: PHHY2012CA096971

PATIENT
  Age: 35 Year
  Sex: Male
  Weight: 198 kg

DRUGS (2)
  1. CLOZARIL [Suspect]
     Dosage: 100 mg, TID
     Route: 048
  2. ATROPINE [Concomitant]

REACTIONS (10)
  - Feeling abnormal [Recovered/Resolved]
  - Tooth loss [Recovered/Resolved]
  - Choking [Recovered/Resolved]
  - Respiratory disorder [Recovered/Resolved]
  - Insomnia [Recovered/Resolved]
  - Cough [Recovered/Resolved]
  - Anxiety [Recovered/Resolved]
  - Convulsion [Recovered/Resolved]
  - Fatigue [Recovered/Resolved]
  - Nausea [Recovered/Resolved]
